FAERS Safety Report 17870357 (Version 1)
Quarter: 2020Q2

REPORT INFORMATION
  Report Type: Spontaneous
  Country: US (occurrence: US)
  Receive Date: 20200605
  Receipt Date: 20200605
  Transmission Date: 20200714
  Serious: Yes (Hospitalization)
  Sender: FDA-Public Use
  Company Number: None

PATIENT
  Age: 53 Year
  Sex: Male

DRUGS (1)
  1. CAPECITABINE 500 MG NOVADOZ PHARMACEUTICALS [Suspect]
     Active Substance: CAPECITABINE
     Indication: ANAL CANCER
     Dosage: (2TABS) TWICE A DAY FOR 14 DAYS ON, THEN 7 DAYS OFF
     Route: 048
     Dates: start: 20200327

REACTIONS (2)
  - Renal function test abnormal [None]
  - Weight decreased [None]

NARRATIVE: CASE EVENT DATE: 20200515
